FAERS Safety Report 17170010 (Version 1)
Quarter: 2019Q4

REPORT INFORMATION
  Report Type: Spontaneous
  Country: US (occurrence: US)
  Receive Date: 20191218
  Receipt Date: 20191218
  Transmission Date: 20200122
  Serious: Yes (Other)
  Sender: FDA-Public Use
  Company Number: US-PFIZER INC-2019542247

PATIENT
  Age: 71 Year
  Sex: Female
  Weight: 52.16 kg

DRUGS (1)
  1. IBRANCE [Suspect]
     Active Substance: PALBOCICLIB
     Indication: BREAST CANCER METASTATIC
     Dosage: 100 MG, CYCLIC [100MG CAPSULE TAKEN BY MOUTH ONCE DAILY FOR 21 DAYS, THEN OFF FOR 7 DAYS   ]
     Route: 048
     Dates: start: 20190214

REACTIONS (2)
  - Neutrophil count decreased [Unknown]
  - White blood cell count decreased [Unknown]

NARRATIVE: CASE EVENT DATE: 20191212
